FAERS Safety Report 10515545 (Version 1)
Quarter: 2014Q4

REPORT INFORMATION
  Report Type: Spontaneous
  Country: US (occurrence: US)
  Receive Date: 20141014
  Receipt Date: 20141014
  Transmission Date: 20150528
  Serious: Yes (Other)
  Sender: FDA-Public Use
  Company Number: US-TEVA-514149USA

PATIENT
  Age: 22 Year
  Sex: Male

DRUGS (6)
  1. MESNA. [Concomitant]
     Active Substance: MESNA
     Indication: HODGKIN^S DISEASE RECURRENT
     Route: 065
  2. IFOSFAMIDE. [Suspect]
     Active Substance: IFOSFAMIDE
     Indication: HODGKIN^S DISEASE RECURRENT
     Route: 065
  3. IFOSFAMIDE. [Suspect]
     Active Substance: IFOSFAMIDE
     Indication: BONE MARROW CONDITIONING REGIMEN
     Route: 065
  4. TACROLIMUS. [Suspect]
     Active Substance: TACROLIMUS
     Indication: PROPHYLAXIS AGAINST GRAFT VERSUS HOST DISEASE
     Route: 065
  5. TACROLIMUS. [Suspect]
     Active Substance: TACROLIMUS
     Indication: GRAFT VERSUS HOST DISEASE IN SKIN
     Route: 065
  6. MESNA. [Concomitant]
     Active Substance: MESNA
     Indication: BONE MARROW CONDITIONING REGIMEN
     Route: 065

REACTIONS (9)
  - Tubulointerstitial nephritis [Not Recovered/Not Resolved]
  - Thrombocytopenia [Unknown]
  - Renal tubular disorder [Not Recovered/Not Resolved]
  - Chronic kidney disease [Not Recovered/Not Resolved]
  - Blood lactate dehydrogenase increased [Unknown]
  - Nephropathy toxic [Unknown]
  - Toxicity to various agents [Not Recovered/Not Resolved]
  - Thrombotic microangiopathy [Unknown]
  - Toxicity to various agents [Unknown]
